FAERS Safety Report 13654645 (Version 4)
Quarter: 2017Q3

REPORT INFORMATION
  Report Type: Spontaneous
  Country: IT (occurrence: IT)
  Receive Date: 20170615
  Receipt Date: 20170717
  Transmission Date: 20171127
  Serious: Yes (Other)
  Sender: FDA-Public Use
  Company Number: IT-ROCHE-1950000

PATIENT
  Sex: Male

DRUGS (1)
  1. AVASTIN [Suspect]
     Active Substance: BEVACIZUMAB
     Indication: NEOVASCULAR AGE-RELATED MACULAR DEGENERATION
     Dosage: 1.25 MG / 50 MICROLITRES.
     Route: 050
     Dates: end: 20170224

REACTIONS (4)
  - Iris adhesions [Unknown]
  - Off label use [Unknown]
  - Iridocyclitis [Unknown]
  - Hypopyon [Unknown]
